FAERS Safety Report 17567560 (Version 1)
Quarter: 2020Q1

REPORT INFORMATION
  Report Type: Report from Study
  Country: DE (occurrence: DE)
  Receive Date: 20200320
  Receipt Date: 20200320
  Transmission Date: 20200409
  Serious: Yes (Congenital Anomaly, Other)
  Sender: FDA-Public Use
  Company Number: DE-HRAPH01-202000202

PATIENT

DRUGS (2)
  1. CEPHADOL 25MG [Concomitant]
     Indication: EXPOSURE DURING PREGNANCY
     Dosage: DURING PREGNANCY 1ST TRIMESTER
     Route: 064
     Dates: start: 2017, end: 2017
  2. ELLAONE [Suspect]
     Active Substance: ULIPRISTAL ACETATE
     Indication: EXPOSURE DURING PREGNANCY
     Route: 064
     Dates: start: 20170217, end: 20170217

REACTIONS (3)
  - Congenital hand malformation [Not Recovered/Not Resolved]
  - Maternal exposure during pregnancy [Unknown]
  - Adactyly [Not Recovered/Not Resolved]

NARRATIVE: CASE EVENT DATE: 2017
